FAERS Safety Report 5091878-X (Version None)
Quarter: 2006Q3

REPORT INFORMATION
  Report Type: 
  Country: None (occurrence: None)
  Receive Date: 20060825
  Receipt Date: 20060815
  Transmission Date: 20061208
  Serious: Yes (Other)
  Sender: FDA-Public Use
  Company Number: 112068ISR

PATIENT
  Age: 33 Year
  Sex: Female

DRUGS (3)
  1. METFORMIN [Suspect]
     Dosage: 2 GRAM
  2. PIOGLITAZONE HCL [Suspect]
     Dosage: 45 MILLIGRAM
  3. PREDNISOLONE [Concomitant]

REACTIONS (3)
  - DIABETES MELLITUS INADEQUATE CONTROL [None]
  - MACULAR OEDEMA [None]
  - UVEITIS [None]
